FAERS Safety Report 4745186-4 (Version None)
Quarter: 2005Q3

REPORT INFORMATION
  Report Type: 
  Country: None (occurrence: None)
  Receive Date: 20050815
  Receipt Date: 20050523
  Transmission Date: 20060218
  Serious: Yes (Life-Threatening, Hospitalization)
  Sender: FDA-Public Use
  Company Number: US-BOEHRINGER INGELHEIM PHARMACEUTICALS, INC.-2005-BP-08569BP

PATIENT
  Age: 75 Year
  Sex: Male

DRUGS (6)
  1. MOBIC [Suspect]
     Indication: OSTEOARTHRITIS
     Route: 048
     Dates: start: 20050413
  2. ZESTRIL [Concomitant]
  3. COUMADIN [Concomitant]
  4. PRAVACHOL [Concomitant]
  5. LASIX [Concomitant]
  6. LANOXIN [Concomitant]

REACTIONS (3)
  - CARDIAC FAILURE CONGESTIVE [None]
  - CARDIOMYOPATHY [None]
  - RENAL FAILURE [None]
